FAERS Safety Report 5693840-2 (Version None)
Quarter: 2008Q2

REPORT INFORMATION
  Report Type: 
  Country: None (occurrence: None)
  Receive Date: 20080403
  Receipt Date: 20080328
  Transmission Date: 20081010
  Serious: Yes (Other)
  Sender: FDA-Public Use
  Company Number: US-PFIZER INC-2007064371

PATIENT
  Sex: Male
  Weight: 77.1 kg

DRUGS (2)
  1. VIAGRA [Suspect]
     Indication: ERECTILE DYSFUNCTION
     Route: 048
     Dates: start: 20010101, end: 20080201
  2. LEVITRA [Concomitant]
     Indication: ERECTILE DYSFUNCTION

REACTIONS (13)
  - CYANOPSIA [None]
  - DIARRHOEA [None]
  - DRUG INEFFECTIVE [None]
  - ERECTION INCREASED [None]
  - FLATULENCE [None]
  - FLUSHING [None]
  - HANGOVER [None]
  - HEADACHE [None]
  - NEOPLASM [None]
  - NERVE COMPRESSION [None]
  - OCULAR HYPERAEMIA [None]
  - PHARMACEUTICAL PRODUCT COMPLAINT [None]
  - STOMACH DISCOMFORT [None]
